FAERS Safety Report 4487964-5 (Version None)
Quarter: 2004Q4

REPORT INFORMATION
  Report Type: 
  Country: None (occurrence: None)
  Receive Date: 20041028
  Receipt Date: 20041006
  Transmission Date: 20050328
  Serious: Yes (Hospitalization, Disabling)
  Sender: FDA-Public Use
  Company Number: NZ-MERCK-0410NZL00035

PATIENT
  Age: 57 Year
  Sex: Male

DRUGS (6)
  1. VIOXX [Suspect]
     Indication: OSTEOARTHRITIS
     Route: 048
     Dates: end: 20021101
  2. DISPRIN [Concomitant]
     Route: 048
  3. PROPRANOLOL HYDROCHLORIDE [Concomitant]
     Indication: MIGRAINE
     Route: 048
     Dates: end: 20021101
  4. PROPRANOLOL HYDROCHLORIDE [Concomitant]
     Indication: TREMOR
     Route: 048
     Dates: end: 20021101
  5. DIPYRIDAMOLE [Concomitant]
     Route: 065
  6. LOSEC (OMEPRAZOLE) [Concomitant]
     Indication: OESOPHAGEAL ULCER
     Route: 065

REACTIONS (1)
  - CEREBROVASCULAR ACCIDENT [None]
